FAERS Safety Report 5107700-9 (Version None)
Quarter: 2006Q3

REPORT INFORMATION
  Report Type: 
  Country: None (occurrence: None)
  Receive Date: 20060919
  Receipt Date: 20060911
  Transmission Date: 20061208
  Serious: Yes (Other)
  Sender: FDA-Public Use
  Company Number: US-BAYER-200613847BCC

PATIENT
  Age: 43 Year
  Sex: Female
  Weight: 66 kg

DRUGS (1)
  1. PHILLIPS MILK OF MAGNESIA LIQUID ORIGINAL [Suspect]
     Indication: CONSTIPATION
     Dosage: UNIT DOSE: 15 ML
     Route: 048
     Dates: start: 19710101

REACTIONS (5)
  - BREAST CANCER [None]
  - CARDIAC VALVE DISEASE [None]
  - HYPERTENSION [None]
  - MUSCLE SPASMS [None]
  - PANIC DISORDER [None]
